FAERS Safety Report 6198473-X (Version None)
Quarter: 2009Q2

REPORT INFORMATION
  Report Type: 
  Country: None (occurrence: None)
  Receive Date: 20090521
  Receipt Date: 20090511
  Transmission Date: 20091009
  Serious: Yes (Hospitalization, Other)
  Sender: FDA-Public Use
  Company Number: PHHY2009DE18379

PATIENT
  Sex: Female
  Weight: 75 kg

DRUGS (6)
  1. CGS 20267 T30748+ [Suspect]
     Indication: BREAST CANCER
     Dosage: 2.5 MG/DAY
     Route: 048
     Dates: start: 20081215
  2. TREVILOR [Concomitant]
  3. CHLORPROTHIXENE [Concomitant]
  4. TORSEMIDE [Concomitant]
  5. BONDRONAT [Concomitant]
     Dosage: UNK
  6. FERRO SANOL [Concomitant]

REACTIONS (6)
  - ASPIRATION PLEURAL CAVITY [None]
  - DYSPNOEA [None]
  - GENERAL PHYSICAL HEALTH DETERIORATION [None]
  - HYPOTENSION [None]
  - METASTASES TO LIVER [None]
  - PLEURAL EFFUSION [None]
